FAERS Safety Report 21707042 (Version 1)
Quarter: 2022Q4

REPORT INFORMATION
  Report Type: Spontaneous
  Country: US (occurrence: US)
  Receive Date: 20221209
  Receipt Date: 20221209
  Transmission Date: 20230112
  Serious: No
  Sender: FDA-Public Use
  Company Number: US-ELI_LILLY_AND_COMPANY-US202212004163

PATIENT
  Sex: Female

DRUGS (1)
  1. EMGALITY [Suspect]
     Active Substance: GALCANEZUMAB-GNLM
     Indication: Product used for unknown indication
     Dosage: 120 MG, UNKNOWN
     Route: 065
     Dates: start: 202012

REACTIONS (4)
  - Underdose [Unknown]
  - Injection site bruising [Recovered/Resolved]
  - Injection site urticaria [Recovered/Resolved]
  - Injection site haemorrhage [Recovered/Resolved]
